FAERS Safety Report 5735889-7 (Version None)
Quarter: 2008Q2

REPORT INFORMATION
  Report Type: 
  Country: None (occurrence: None)
  Receive Date: 20080509
  Receipt Date: 20080509
  Transmission Date: 20081010
  Serious: No
  Sender: FDA-Public Use
  Company Number: None

PATIENT
  Age: 43 Year
  Sex: Female
  Weight: 73 kg

DRUGS (1)
  1. CUBICIN [Suspect]
     Indication: OSTEOMYELITIS
     Dosage: 450MG Q24 IV DRIP/APPR. 2-3 WEEKS
     Route: 041
     Dates: start: 20080312, end: 20080410

REACTIONS (2)
  - TREMOR [None]
  - VISION BLURRED [None]
